FAERS Safety Report 24018632 (Version 1)
Quarter: 2024Q2

REPORT INFORMATION
  Report Type: Spontaneous
  Country: US (occurrence: None)
  Receive Date: 20240626
  Receipt Date: 20240626
  Transmission Date: 20240716
  Serious: Yes (Hospitalization)
  Sender: FDA-Public Use
  Company Number: None

PATIENT
  Age: 63 Year
  Sex: Male

DRUGS (4)
  1. BENEFIX [Suspect]
     Active Substance: COAGULATION FACTOR IX RECOMBINANT HUMAN\ISOPROPYL ALCOHOL
     Indication: Factor IX deficiency
     Dosage: OTHER QUANTITY : 6000 UNITS?FREQUENCY : AS NEEDED
     Route: 042
     Dates: start: 202312
  2. BENEFIX [Suspect]
     Active Substance: COAGULATION FACTOR IX RECOMBINANT HUMAN\ISOPROPYL ALCOHOL
     Indication: Factor IX deficiency
     Dosage: OTHER QUANTITY : 6000 UNITS?FREQUENCY : AS NEEDED;
     Route: 042
     Dates: start: 202312
  3. ALPROLIX [Concomitant]
     Active Substance: EFTRENONACOG ALFA
  4. VYNDAMAX [Concomitant]
     Active Substance: TAFAMIDIS

REACTIONS (1)
  - Cardiac disorder [None]

NARRATIVE: CASE EVENT DATE: 20240614
